FAERS Safety Report 24034728 (Version 1)
Quarter: 2024Q3

REPORT INFORMATION
  Report Type: Report from Study
  Country: AT (occurrence: AT)
  Receive Date: 20240701
  Receipt Date: 20240701
  Transmission Date: 20241016
  Serious: No
  Sender: ROCHE
  Company Number: AT-ROCHE-3564713

PATIENT
  Age: 46 Year
  Sex: Female
  Weight: 72.0 kg

DRUGS (9)
  1. EVRYSDI [Suspect]
     Active Substance: RISDIPLAM
     Indication: Spinal muscular atrophy
     Dosage: LAST ADMINISTRATION: 14/MAR/2024
     Route: 048
     Dates: start: 20210619
  2. LOSARTAN [Concomitant]
     Active Substance: LOSARTAN
     Dates: start: 2006
  3. SERTRALINE [Concomitant]
     Active Substance: SERTRALINE HYDROCHLORIDE
     Dates: start: 2006
  4. OXYCODONE [Concomitant]
     Active Substance: OXYCODONE
     Dates: start: 2006
  5. GABAPENTIN [Concomitant]
     Active Substance: GABAPENTIN
     Dates: start: 2006
  6. POLYETHYLENE GLYCOLS [Concomitant]
     Active Substance: POLYETHYLENE GLYCOLS
     Dates: start: 2006
  7. PANTOPRAZOLE [Concomitant]
     Active Substance: PANTOPRAZOLE
     Dates: start: 2006
  8. DENOSUMAB [Concomitant]
     Active Substance: DENOSUMAB
     Dates: start: 2006
  9. ONDANSETRON [Concomitant]
     Active Substance: ONDANSETRON
     Dates: start: 2006

REACTIONS (1)
  - Respiratory tract infection [Recovered/Resolved]

NARRATIVE: CASE EVENT DATE: 20240222
